FAERS Safety Report 6832640-4 (Version None)
Quarter: 2010Q3

REPORT INFORMATION
  Report Type: 
  Country: None (occurrence: None)
  Receive Date: 20100712
  Receipt Date: 20070331
  Transmission Date: 20110219
  Serious: Yes (Other)
  Sender: FDA-Public Use
  Company Number: US-PFIZER INC-2007020858

PATIENT
  Sex: Female
  Weight: 108.9 kg

DRUGS (6)
  1. VARENICLINE [Suspect]
     Indication: SMOKING CESSATION THERAPY
     Route: 048
     Dates: start: 20070201, end: 20070301
  2. BENADRYL [Suspect]
  3. LIPITOR [Concomitant]
     Route: 048
  4. NEXIUM [Concomitant]
     Route: 048
  5. EVISTA [Concomitant]
     Route: 048
  6. CARDIOVASCULAR SYSTEM DRUGS [Concomitant]
     Indication: BLOOD PRESSURE

REACTIONS (12)
  - ABDOMINAL PAIN UPPER [None]
  - ABNORMAL DREAMS [None]
  - APHONIA [None]
  - CRYING [None]
  - DEPRESSION [None]
  - DRUG WITHDRAWAL SYNDROME [None]
  - HYPERSOMNIA [None]
  - INSOMNIA [None]
  - NAUSEA [None]
  - NIGHTMARE [None]
  - SNEEZING [None]
  - SUICIDAL IDEATION [None]
